FAERS Safety Report 7657097-5 (Version None)
Quarter: 2011Q3

REPORT INFORMATION
  Report Type: 
  Country: None (occurrence: None)
  Receive Date: 20110804
  Receipt Date: 20101115
  Transmission Date: 20111222
  Serious: No
  Sender: FDA-Public Use
  Company Number: US-GLAXOSMITHKLINE-A0892539A

PATIENT
  Age: 74 Year
  Sex: Female

DRUGS (7)
  1. GLYBURIDE [Concomitant]
  2. DILTIAZEM [Concomitant]
  3. WARFARIN [Concomitant]
  4. LANOXIN [Concomitant]
  5. ADVAIR DISKUS 100/50 [Suspect]
     Indication: ASTHMA
     Dosage: 1PUFF TWICE PER DAY
     Route: 055
     Dates: start: 20010101
  6. LASIX [Concomitant]
  7. VITAMIN TAB [Concomitant]

REACTIONS (4)
  - COUGH [None]
  - OROPHARYNGEAL PAIN [None]
  - SOMNOLENCE [None]
  - PRODUCT QUALITY ISSUE [None]
